FAERS Safety Report 6924051-8 (Version None)
Quarter: 2010Q3

REPORT INFORMATION
  Report Type: 
  Country: None (occurrence: None)
  Receive Date: 20100813
  Receipt Date: 20100812
  Transmission Date: 20110219
  Serious: Yes (Other)
  Sender: FDA-Public Use
  Company Number: NL-AMGEN-KDC386834

PATIENT
  Age: 64 Year
  Sex: Male
  Weight: 74.3 kg

DRUGS (11)
  1. ARANESP [Suspect]
     Indication: ANAEMIA OF MALIGNANT DISEASE
     Route: 058
     Dates: start: 20090508
  2. CARBOPLATIN [Suspect]
     Dates: start: 20090415, end: 20090725
  3. CODEINE PHOSPHATE AND ACETAMINOPHEN [Concomitant]
     Route: 048
  4. METOPROLOL TARTRATE [Concomitant]
     Route: 048
  5. RIVOTRIL [Concomitant]
     Route: 048
  6. ACETAMINOPHEN [Concomitant]
     Route: 048
  7. TRAMADOL HYDROCHLORIDE [Concomitant]
     Route: 048
  8. OMEPRAZOLE [Concomitant]
     Route: 048
  9. DEPAKENE [Concomitant]
     Route: 048
  10. UNSPECIFIED ANTINEOPLASTIC AGENT [Concomitant]
     Dates: start: 20090415
  11. GEMCITABINE HCL [Concomitant]
     Dates: start: 20090415, end: 20090725

REACTIONS (1)
  - INTERMITTENT CLAUDICATION [None]
